FAERS Safety Report 5890507-2 (Version None)
Quarter: 2008Q3

REPORT INFORMATION
  Report Type: 
  Country: None (occurrence: None)
  Receive Date: 20080922
  Receipt Date: 20080915
  Transmission Date: 20090109
  Serious: Yes (Other)
  Sender: FDA-Public Use
  Company Number: PHNU2008DE01185

PATIENT
  Sex: Female
  Weight: 56 kg

DRUGS (11)
  1. EXELON [Suspect]
     Indication: DEMENTIA ALZHEIMER'S TYPE
     Dosage: 4.6 MG/24 HR PATCH
     Route: 062
  2. DIGITOXIN INJ [Concomitant]
     Dosage: 0.5
  3. METOPROLOL TARTRATE [Concomitant]
     Dosage: 1
  4. PENTALONG [Concomitant]
     Dosage: 1-0-1
  5. DELMUNO [Concomitant]
     Dosage: 1
  6. ASPIRIN [Concomitant]
     Dosage: 1
  7. GLIMEPIRIDE [Concomitant]
     Dosage: 0.5
  8. KALIUM-MAGNESIUM [Concomitant]
     Dosage: 1
  9. LACTULOSE [Concomitant]
     Dosage: 0.75
  10. METFORMIN HCL [Concomitant]
     Dosage: 1-0-0.5
  11. ARLEVERT [Concomitant]
     Dosage: 1-1-1

REACTIONS (5)
  - DIZZINESS [None]
  - FALL [None]
  - HYPOGLYCAEMIA [None]
  - NAUSEA [None]
  - VOMITING [None]
